FAERS Safety Report 25010526 (Version 1)
Quarter: 2025Q1

REPORT INFORMATION
  Report Type: Spontaneous
  Country: JP (occurrence: JP)
  Receive Date: 20250225
  Receipt Date: 20250225
  Transmission Date: 20250408
  Serious: Yes (Other)
  Sender: Visiox
  Company Number: JP-SANTEN-2024-AER-00292

PATIENT
  Age: 55 Year
  Sex: Female

DRUGS (2)
  1. OMIDENEPAG ISOPROPYL [Suspect]
     Active Substance: OMIDENEPAG ISOPROPYL
     Indication: Glaucoma
     Dosage: ONCE A DAY, 1 DROP AT A TIME, NIGHT DROPS, ONE EYE
     Route: 047
     Dates: start: 20240301, end: 20240628
  2. PIRENOXINE [Concomitant]
     Active Substance: PIRENOXINE
     Indication: Cataract
     Route: 047
     Dates: start: 20230306

REACTIONS (2)
  - Detachment of retinal pigment epithelium [Recovering/Resolving]
  - Cystoid macular oedema [Recovered/Resolved]

NARRATIVE: CASE EVENT DATE: 20240628
